FAERS Safety Report 9423728 (Version 4)
Quarter: 2013Q4

REPORT INFORMATION
  Report Type: Spontaneous
  Country: IE (occurrence: IE)
  Receive Date: 20130728
  Receipt Date: 20131104
  Transmission Date: 20140711
  Serious: Yes (Hospitalization)
  Sender: FDA-Public Use
  Company Number: PHFR2013IE004254

PATIENT
  Sex: Male

DRUGS (2)
  1. CLOZARIL [Suspect]
     Indication: SCHIZOPHRENIA
     Dosage: 450 MG
     Route: 048
     Dates: start: 20120223
  2. CLOZARIL [Suspect]
     Dosage: 350 MG
     Route: 048

REACTIONS (3)
  - Poor quality sleep [Recovering/Resolving]
  - Tooth abscess [Recovered/Resolved]
  - Pain [Unknown]
